FAERS Safety Report 11988874 (Version 1)
Quarter: 2016Q1

REPORT INFORMATION
  Report Type: Spontaneous
  Country: MY (occurrence: MY)
  Receive Date: 20160202
  Receipt Date: 20160202
  Transmission Date: 20160526
  Serious: Yes (Hospitalization)
  Sender: FDA-Public Use
  Company Number: MY-MYLANLABS-2016M1004143

PATIENT

DRUGS (3)
  1. CELECOXIB. [Suspect]
     Active Substance: CELECOXIB
     Indication: PAIN
     Route: 065
  2. PARACETAMOL [Concomitant]
     Active Substance: ACETAMINOPHEN
     Dosage: 1000MG
     Route: 065
  3. CELECOXIB. [Suspect]
     Active Substance: CELECOXIB
     Dosage: 200MG
     Route: 065

REACTIONS (1)
  - Medication overuse headache [Unknown]
